FAERS Safety Report 18098819 (Version 1)
Quarter: 2020Q3

REPORT INFORMATION
  Report Type: Spontaneous
  Country: CH (occurrence: CH)
  Receive Date: 20200731
  Receipt Date: 20200731
  Transmission Date: 20201103
  Serious: Yes (Hospitalization)
  Sender: FDA-Public Use
  Company Number: CH-PFIZER INC-2020285142

PATIENT
  Age: 90 Year
  Sex: Female
  Weight: 52.7 kg

DRUGS (11)
  1. XANAX [Suspect]
     Active Substance: ALPRAZOLAM
     Indication: ANXIETY
     Dosage: 0.25 MG, 2X/DAY (2 SEPARATED DOSES)
     Route: 048
     Dates: start: 20200622
  2. DAFLON [DIOSMIN;HESPERIDIN] [Suspect]
     Active Substance: DIOSMIN\HESPERIDIN
     Dosage: 500 MG, 2X/DAY
  3. METOPROLOL. [Suspect]
     Active Substance: METOPROLOL
     Dosage: 12.5 MG, 1X/DAY
  4. LANSOPRAZOLE. [Suspect]
     Active Substance: LANSOPRAZOLE
     Dosage: 15 MG, 1X/DAY
  5. STILNOX [Suspect]
     Active Substance: ZOLPIDEM TARTRATE
     Indication: INSOMNIA
     Dosage: 5 MG, AS NEEDED
     Route: 048
     Dates: start: 2020
  6. MAGNESIUM [Suspect]
     Active Substance: MAGNESIUM
     Dosage: 300 MG, 1X/DAY
  7. RETINOL PALMITATE [Suspect]
     Active Substance: VITAMIN A PALMITATE
     Dosage: UNK, 1X/DAY
  8. CIPRALEX [Suspect]
     Active Substance: ESCITALOPRAM OXALATE
     Indication: DEPRESSION
     Dosage: 10 MG, 1X/DAY
     Route: 048
     Dates: start: 20200622, end: 20200625
  9. TOREM [TORASEMIDE] [Suspect]
     Active Substance: TORSEMIDE
     Indication: HYPERTENSION
     Dosage: 2.5 MG
     Route: 048
     Dates: end: 20200625
  10. CALCIUM AND VITAMIN D [Suspect]
     Active Substance: CALCIUM\VITAMIN D
     Dosage: 15000 IU
  11. CALCIUM AND VIT D [Suspect]
     Active Substance: CALCIUM\VITAMIN D
     Dosage: 1 G, 1X/DAY

REACTIONS (7)
  - Loss of consciousness [Recovered/Resolved]
  - Fall [Recovered/Resolved]
  - Dehydration [Recovered/Resolved]
  - Confusional state [Recovered/Resolved]
  - Inappropriate antidiuretic hormone secretion [Recovered/Resolved]
  - Blood osmolarity increased [Recovered/Resolved]
  - Hyponatraemia [Recovered/Resolved]

NARRATIVE: CASE EVENT DATE: 20200625
